FAERS Safety Report 8029401-X (Version None)
Quarter: 2012Q1

REPORT INFORMATION
  Report Type: 
  Country: None (occurrence: None)
  Receive Date: 20120106
  Receipt Date: 20120102
  Transmission Date: 20120608
  Serious: Yes (Other)
  Sender: FDA-Public Use
  Company Number: DE-ASTRAZENECA-2012SE00300

PATIENT
  Sex: Female

DRUGS (3)
  1. NEXIUM [Suspect]
     Route: 048
     Dates: start: 20100601
  2. LEVETIRACETAM [Concomitant]
     Route: 048
     Dates: start: 20111101
  3. BETA BLOCKER [Concomitant]

REACTIONS (4)
  - COUGH [None]
  - HAEMORRHAGIC STROKE [None]
  - RASH [None]
  - HEADACHE [None]
